APPROVED DRUG PRODUCT: CARBOPLATIN
Active Ingredient: CARBOPLATIN
Strength: 600MG/60ML (10MG/ML)
Dosage Form/Route: INJECTABLE;INTRAVENOUS
Application: A077096 | Product #004
Applicant: MEITHEAL PHARMACEUTICALS INC
Approved: Jun 3, 2013 | RLD: No | RS: No | Type: DISCN